FAERS Safety Report 19570362 (Version 1)
Quarter: 2021Q3

REPORT INFORMATION
  Report Type: Spontaneous
  Country: AU (occurrence: AU)
  Receive Date: 20210716
  Receipt Date: 20210716
  Transmission Date: 20211014
  Serious: Yes (Other)
  Sender: FDA-Public Use
  Company Number: AU-ORGANON-O2107AUS000504

PATIENT
  Age: 74 Year
  Sex: Male

DRUGS (11)
  1. APOMINE [Suspect]
     Active Substance: APOMORPHINE HYDROCHLORIDE
     Indication: PARKINSON^S DISEASE
     Dosage: UNK (30 MG/ 3ML (STRENGTH:10G/L)
     Route: 058
     Dates: start: 20180213
  2. MADOPAR HBS [Suspect]
     Active Substance: BENSERAZIDE HYDROCHLORIDE\LEVODOPA
     Dosage: UNK
  3. FLORINEF ACETATE [Concomitant]
     Active Substance: FLUDROCORTISONE ACETATE
     Indication: PARKINSON^S DISEASE
     Dosage: 50 MICROGRAM
  4. SIFROL ER [Concomitant]
     Active Substance: PRAMIPEXOLE
     Indication: PARKINSON^S DISEASE
     Dosage: 0.75 MILLIGRAM
  5. APOMINE [Suspect]
     Active Substance: APOMORPHINE HYDROCHLORIDE
     Dosage: UNK
     Route: 058
  6. APOMINE [Suspect]
     Active Substance: APOMORPHINE HYDROCHLORIDE
     Dosage: 3.5 MILLIGRAM, INTERVAL: 1 AS NECESSARY
     Route: 058
  7. SINEMET [Suspect]
     Active Substance: CARBIDOPA\LEVODOPA
     Indication: PARKINSON^S DISEASE
     Dosage: 1 DOSE UNSPECIFIED
  8. AMANTADINE HYDROCHLORIDE. [Concomitant]
     Active Substance: AMANTADINE HYDROCHLORIDE
     Indication: PARKINSON^S DISEASE
     Dosage: 200 MILLIGRAM, INTERVAL: 1 DAY
  9. AZILECT [Concomitant]
     Active Substance: RASAGILINE MESYLATE
     Indication: PARKINSON^S DISEASE
     Dosage: 1 MILLIGRAM
  10. APOMINE [Suspect]
     Active Substance: APOMORPHINE HYDROCHLORIDE
     Indication: PARKINSON^S DISEASE
     Dosage: INTERVAL: 1 DAY (100MG/20MLS (STRENGTH: 5G/L)
     Route: 058
  11. STALEVO [Concomitant]
     Active Substance: CARBIDOPA\ENTACAPONE\LEVODOPA
     Indication: PARKINSON^S DISEASE
     Dosage: INTERVAL: 1 DAY

REACTIONS (38)
  - Hallucination, visual [Unknown]
  - Insomnia [Unknown]
  - Aphasia [Unknown]
  - Disturbance in attention [Unknown]
  - Post micturition dribble [Unknown]
  - Depression [Unknown]
  - Cerebellar stroke [Unknown]
  - Freezing phenomenon [Unknown]
  - Ataxia [Unknown]
  - Headache [Unknown]
  - Hypoaesthesia [Unknown]
  - Salivary hypersecretion [Unknown]
  - Rapid eye movement sleep behaviour disorder [Unknown]
  - White blood cell count abnormal [Recovered/Resolved]
  - Sensory disturbance [Unknown]
  - Neuralgia [Unknown]
  - Somnolence [Recovering/Resolving]
  - Tremor [Unknown]
  - Micturition urgency [Unknown]
  - Vertigo [Unknown]
  - Oliguria [Unknown]
  - Nocturia [Unknown]
  - Nasal mucosal disorder [Unknown]
  - Chronic inflammatory demyelinating polyradiculoneuropathy [Unknown]
  - Dysarthria [Unknown]
  - Photopsia [Unknown]
  - Gait disturbance [Unknown]
  - Sinusitis [Unknown]
  - Lethargy [Unknown]
  - Eye pain [Unknown]
  - Vestibular disorder [Unknown]
  - Memory impairment [Unknown]
  - Constipation [Unknown]
  - Anxiety [Unknown]
  - Bradykinesia [Unknown]
  - Brain stem stroke [Unknown]
  - Urine flow decreased [Unknown]
  - Fatigue [Unknown]

NARRATIVE: CASE EVENT DATE: 20180213
